FAERS Safety Report 9502694 (Version 1)
Quarter: 2013Q1

REPORT INFORMATION
  Report Type: Spontaneous
  Country: US (occurrence: None)
  Receive Date: 20130225
  Receipt Date: 20130225
  Transmission Date: 20140127
  Serious: Yes (Hospitalization)
  Sender: FDA-Public Use
  Company Number: 2012-256

PATIENT
  Age: 75 Year
  Sex: Male

DRUGS (4)
  1. PRIALT [Suspect]
     Indication: PAIN
  2. PRIALT [Suspect]
     Indication: ARACHNOIDITIS
  3. MORPHINE [Suspect]
  4. BACLOFEN [Suspect]

REACTIONS (1)
  - Pain [None]
